FAERS Safety Report 8074376-0 (Version None)
Quarter: 2012Q1

REPORT INFORMATION
  Report Type: 
  Country: None (occurrence: None)
  Receive Date: 20120126
  Receipt Date: 20120125
  Transmission Date: 20120608
  Serious: Yes (Hospitalization)
  Sender: FDA-Public Use
  Company Number: US-GLAXOSMITHKLINE-A0958168A

PATIENT
  Age: 47 Year
  Sex: Female

DRUGS (11)
  1. GABAPENTIN [Concomitant]
  2. SINGULAIR [Concomitant]
  3. LIDODERM [Concomitant]
  4. ALBUTEROL [Concomitant]
  5. TRAZODONE HCL [Concomitant]
  6. TIZANIDINE HCL [Concomitant]
  7. ALBUTEROL [Suspect]
     Indication: ASTHMA
  8. METOPROLOL TARTRATE [Concomitant]
  9. AMBIEN [Concomitant]
  10. ANALGESIC [Concomitant]
  11. ADVAIR DISKUS 100/50 [Suspect]
     Indication: CHRONIC OBSTRUCTIVE PULMONARY DISEASE
     Dosage: 1PUFF TWICE PER DAY
     Route: 055
     Dates: start: 20100801, end: 20100823

REACTIONS (15)
  - PNEUMONIA [None]
  - RENAL FAILURE [None]
  - ASTHMA [None]
  - FEELING ABNORMAL [None]
  - ADVERSE EVENT [None]
  - MEMORY IMPAIRMENT [None]
  - DRUG INEFFECTIVE [None]
  - CONFUSIONAL STATE [None]
  - ABASIA [None]
  - SUFFOCATION FEELING [None]
  - DYSGRAPHIA [None]
  - HYPERSENSITIVITY [None]
  - DYSPNOEA [None]
  - APPARENT DEATH [None]
  - ENDOTRACHEAL INTUBATION [None]
